FAERS Safety Report 6475013-9 (Version None)
Quarter: 2009Q4

REPORT INFORMATION
  Report Type: 
  Country: None (occurrence: None)
  Receive Date: 20091204
  Receipt Date: 20090511
  Transmission Date: 20100525
  Serious: Yes (Hospitalization)
  Sender: FDA-Public Use
  Company Number: FR-ELI_LILLY_AND_COMPANY-FR200903000927

PATIENT
  Age: 80 Year
  Sex: Female
  Weight: 50 kg

DRUGS (6)
  1. FORTEO [Suspect]
     Indication: OSTEOPOROSIS
     Dosage: 20 UG, DAILY (1/D)
     Route: 058
     Dates: start: 20080421, end: 20090315
  2. FORTEO [Suspect]
     Dosage: UNK, UNKNOWN
     Route: 065
     Dates: start: 20090318
  3. ISOPTIN [Concomitant]
     Indication: HYPERTENSION
     Route: 048
  4. VASTEN [Concomitant]
     Indication: HYPERCHOLESTEROLAEMIA
     Dosage: UNK, UNKNOWN
     Route: 048
  5. IDEOS                              /00944201/ [Concomitant]
     Indication: OSTEOPOROSIS
     Dosage: UNK, 2/D
     Route: 048
  6. UVEDOSE [Concomitant]
     Indication: OSTEOPOROSIS
     Dosage: 1X3 MOIS
     Route: 048
     Dates: start: 20080401

REACTIONS (2)
  - FALL [None]
  - RADIUS FRACTURE [None]
